FAERS Safety Report 7207670-3 (Version None)
Quarter: 2011Q1

REPORT INFORMATION
  Report Type: 
  Country: None (occurrence: None)
  Receive Date: 20110103
  Receipt Date: 20101222
  Transmission Date: 20110831
  Serious: Yes (Other)
  Sender: FDA-Public Use
  Company Number: US-PFIZER INC-2010177784

PATIENT
  Sex: Male
  Weight: 92.971 kg

DRUGS (11)
  1. LYRICA [Suspect]
     Indication: ARTHRITIS
  2. ATENOLOL [Concomitant]
     Indication: HYPERTENSION
     Dosage: 50 MG, 1X/DAY
  3. LYRICA [Suspect]
     Indication: ANXIETY
  4. LYRICA [Suspect]
     Indication: PAIN
  5. NAPROXEN [Concomitant]
     Indication: ARTHRALGIA
     Dosage: 500 MG, AS NEEDED
  6. LISINOPRIL [Concomitant]
     Indication: HYPERTENSION
     Dosage: 40 MG, 1X/DAY
  7. NAPROXEN [Concomitant]
     Indication: SWELLING
  8. LYRICA [Suspect]
     Indication: INTERVERTEBRAL DISC DISORDER
  9. CYMBALTA [Concomitant]
     Indication: DEPRESSION
     Dosage: 60 MG, 1X/DAY
     Route: 048
  10. LYRICA [Suspect]
     Indication: NERVE INJURY
     Dosage: 75 MG, 5X/DAY
     Route: 048
  11. ACETYLSALICYLIC ACID [Concomitant]
     Dosage: UNK

REACTIONS (2)
  - WEIGHT INCREASED [None]
  - RENAL FAILURE CHRONIC [None]
